FAERS Safety Report 9821974 (Version 3)
Quarter: 2014Q1

REPORT INFORMATION
  Report Type: Report from Study
  Country: TZ (occurrence: TZ)
  Receive Date: 20140116
  Receipt Date: 20140123
  Transmission Date: 20141002
  Serious: Yes (Hospitalization, Other)
  Sender: FDA-Public Use
  Company Number: TZ-SA-2013SA134555

PATIENT
  Age: 27 Year
  Sex: Male
  Weight: 61.9 kg

DRUGS (6)
  1. BLINDED THERAPY [Suspect]
     Indication: TUBERCULOSIS
     Route: 048
     Dates: start: 20131118, end: 20131130
  2. BLINDED THERAPY [Suspect]
     Indication: TUBERCULOSIS
     Route: 048
     Dates: end: 20131216
  3. ISONIAZID [Suspect]
     Indication: TUBERCULOSIS
     Route: 065
     Dates: start: 20131118, end: 20131216
  4. PYRAZINAMIDE [Suspect]
     Indication: TUBERCULOSIS
     Route: 065
     Dates: start: 20131118, end: 20131216
  5. ETHAMBUTOL [Suspect]
     Indication: TUBERCULOSIS
     Route: 065
     Dates: start: 20131118, end: 20131216
  6. PYRIDOXINE [Suspect]
     Indication: VITAMIN SUPPLEMENTATION
     Route: 065
     Dates: start: 20131118, end: 20131216

REACTIONS (2)
  - Drug-induced liver injury [Recovered/Resolved]
  - Pneumothorax [Recovering/Resolving]
